FAERS Safety Report 6579320-0 (Version None)
Quarter: 2010Q1

REPORT INFORMATION
  Report Type: 
  Country: None (occurrence: None)
  Receive Date: 20100209
  Receipt Date: 20100209
  Transmission Date: 20100710
  Serious: Yes (Hospitalization)
  Sender: FDA-Public Use
  Company Number: None

PATIENT
  Age: 53 Year
  Sex: Male
  Weight: 65.2 kg

DRUGS (2)
  1. LISINOPRIL [Suspect]
     Indication: HYPERTENSION
     Dosage: 40 MG EVERY DAY PO
     Route: 048
     Dates: start: 20030423, end: 20091231
  2. EPOETIN ALFA,RECOMBINANT [Suspect]
     Dosage: 2000 UNITS OTHER IV
     Route: 042
     Dates: start: 20090210

REACTIONS (4)
  - ANGIOEDEMA [None]
  - DIALYSIS [None]
  - HYPOTENSION [None]
  - TACHYCARDIA [None]
